FAERS Safety Report 5664537-X (Version None)
Quarter: 2008Q1

REPORT INFORMATION
  Report Type: 
  Country: None (occurrence: None)
  Receive Date: 20080314
  Receipt Date: 20080304
  Transmission Date: 20080703
  Serious: Yes (Hospitalization)
  Sender: FDA-Public Use
  Company Number: IT-ABBOTT-07P-083-0363743-00

PATIENT
  Sex: Female
  Weight: 62 kg

DRUGS (5)
  1. HUMIRA [Suspect]
     Indication: RHEUMATOID ARTHRITIS
     Route: 058
     Dates: start: 20050921
  2. HUMIRA [Suspect]
     Route: 058
     Dates: start: 20050824, end: 20050921
  3. PREDNISONE TAB [Concomitant]
     Indication: RHEUMATOID ARTHRITIS
     Dates: start: 20050824
  4. METACEN [Concomitant]
     Indication: RHEUMATOID ARTHRITIS
     Dates: start: 20050824
  5. FENTANYL [Concomitant]
     Indication: RHEUMATOID ARTHRITIS
     Dates: start: 20050824

REACTIONS (1)
  - PSORIASIS [None]
